FAERS Safety Report 20904786 (Version 1)
Quarter: 2022Q2

REPORT INFORMATION
  Report Type: Spontaneous
  Country: US (occurrence: None)
  Receive Date: 20220601
  Receipt Date: 20220601
  Transmission Date: 20220720
  Serious: No
  Sender: FDA-Public Use
  Company Number: None

PATIENT
  Age: 75 Year
  Sex: Female
  Weight: 79.56 kg

DRUGS (13)
  1. NEULASTA [Suspect]
     Active Substance: PEGFILGRASTIM
     Indication: Diffuse large B-cell lymphoma
     Dosage: OTHER FREQUENCY : Q21 DAYS;?
     Route: 058
  2. POLIVY [Suspect]
     Active Substance: POLATUZUMAB VEDOTIN-PIIQ
     Indication: Diffuse large B-cell lymphoma
     Dosage: FREQUENCY : ONCE;?
     Route: 042
  3. ASPIRIN [Concomitant]
     Active Substance: ASPIRIN
  4. BIOTIN [Concomitant]
     Active Substance: BIOTIN
  5. GLIMEPIRIDE [Concomitant]
     Active Substance: GLIMEPIRIDE
  6. ESCITALOPRAM [Concomitant]
     Active Substance: ESCITALOPRAM OXALATE
  7. LISINOPRIL [Concomitant]
     Active Substance: LISINOPRIL
  8. METFORMIN [Concomitant]
     Active Substance: METFORMIN HYDROCHLORIDE
  9. FARXIGA [Concomitant]
     Active Substance: DAPAGLIFLOZIN PROPANEDIOL
  10. FENOFIBRATE [Concomitant]
     Active Substance: FENOFIBRATE
  11. LOVAASTATIN [Concomitant]
  12. VITAMINS [Concomitant]
     Active Substance: VITAMINS
  13. VITAMIN B12 [Concomitant]
     Active Substance: CYANOCOBALAMIN

REACTIONS (1)
  - Pneumonia [None]
